APPROVED DRUG PRODUCT: BUPROPION HYDROCHLORIDE
Active Ingredient: BUPROPION HYDROCHLORIDE
Strength: 100MG
Dosage Form/Route: TABLET;ORAL
Application: A075310 | Product #002
Applicant: HERITAGE PHARMA LABS INC
Approved: Nov 29, 1999 | RLD: No | RS: No | Type: DISCN